FAERS Safety Report 8894999 (Version 1)
Quarter: 2012Q4

REPORT INFORMATION
  Report Type: 
  Country: US (occurrence: US)
  Receive Date: 20121107
  Receipt Date: 20121107
  Transmission Date: 20130627
  Serious: No
  Sender: FDA-Public Use
  Company Number: US-AMGEN-USASP2011060789

PATIENT
  Age: 58 Year
  Sex: Female
  Weight: 97.05 kg

DRUGS (6)
  1. ENBREL [Suspect]
     Indication: PRODUCT USED FOR UNKNOWN INDICATION
     Dosage: 50 mg, qwk
     Route: 058
  2. PREDNISONE [Concomitant]
     Dosage: 2.5 mg, UNK
  3. METHOTREXATE [Concomitant]
     Dosage: 2.5 mg, UNK
  4. FLEXERIL                           /00428402/ [Concomitant]
     Dosage: 5 mg, UNK
  5. MAXZIDE [Concomitant]
     Dosage: UNK
  6. LOPRESSOR [Concomitant]
     Dosage: 50 mg, UNK

REACTIONS (7)
  - Injection site pain [Unknown]
  - Injection site swelling [Unknown]
  - Injection site erythema [Unknown]
  - Injection site pruritus [Unknown]
  - Injection site urticaria [Unknown]
  - Injection site reaction [Unknown]
  - Campylobacter gastroenteritis [Unknown]
